FAERS Safety Report 13955071 (Version 1)
Quarter: 2017Q3

REPORT INFORMATION
  Report Type: Spontaneous
  Country: US (occurrence: US)
  Receive Date: 20170911
  Receipt Date: 20170911
  Transmission Date: 20171128
  Serious: No
  Sender: FDA-Public Use
  Company Number: US-BRAINTREE LABORATORIES-170320

PATIENT
  Age: 51 Year
  Sex: Female
  Weight: 100.69 kg

DRUGS (1)
  1. SUPREP BOWEL PREP [Suspect]
     Active Substance: MAGNESIUM SULFATE\POTASSIUM SULFATE\SODIUM SULFATE
     Indication: COLONOSCOPY
     Dosage: 1.5 X 6 OZ.BOTTLE
     Route: 048
     Dates: start: 20170525, end: 20170526

REACTIONS (4)
  - Swelling [None]
  - Muscle spasms [None]
  - Wrong technique in product usage process [None]
  - Vomiting [None]

NARRATIVE: CASE EVENT DATE: 20170525
